FAERS Safety Report 6961629-X (Version None)
Quarter: 2010Q3

REPORT INFORMATION
  Report Type: 
  Country: None (occurrence: None)
  Receive Date: 20100901
  Receipt Date: 20100823
  Transmission Date: 20110219
  Serious: Yes (Other)
  Sender: FDA-Public Use
  Company Number: PHHY2010AU56064

PATIENT
  Sex: Female

DRUGS (1)
  1. ZOLEDRONIC [Suspect]
     Dosage: UNK
     Dates: start: 20100817

REACTIONS (7)
  - DECREASED APPETITE [None]
  - INFLUENZA LIKE ILLNESS [None]
  - INSOMNIA [None]
  - MOUTH ULCERATION [None]
  - NAUSEA [None]
  - PYREXIA [None]
  - VOMITING [None]
